FAERS Safety Report 15491971 (Version 2)
Quarter: 2018Q4

REPORT INFORMATION
  Report Type: Spontaneous
  Country: IT (occurrence: IT)
  Receive Date: 20181012
  Receipt Date: 20181031
  Transmission Date: 20190205
  Serious: Yes (Disabling)
  Sender: FDA-Public Use
  Company Number: IT-B.I. PHARMACEUTICALS,INC./RIDGEFIELD-2018-12-003376

PATIENT
  Age: 62 Year
  Sex: Male
  Weight: 99 kg

DRUGS (1)
  1. SYNJARDY [Suspect]
     Active Substance: EMPAGLIFLOZIN\METFORMIN HYDROCHLORIDE
     Indication: TYPE 2 DIABETES MELLITUS
     Dosage: 12.5 MG/850 MG
     Route: 048
     Dates: start: 20180816, end: 20180924

REACTIONS (2)
  - Dry gangrene [Recovered/Resolved with Sequelae]
  - Foot deformity [Recovered/Resolved with Sequelae]

NARRATIVE: CASE EVENT DATE: 20180924
